FAERS Safety Report 20018042 (Version 3)
Quarter: 2024Q2

REPORT INFORMATION
  Report Type: Report from Study
  Country: GB (occurrence: GB)
  Receive Date: 20211101
  Receipt Date: 20240423
  Transmission Date: 20240716
  Serious: Yes (Other)
  Sender: FDA-Public Use
  Company Number: GB-ROCHE-2861190

PATIENT
  Age: 65 Year
  Sex: Male
  Weight: 87.5 kg

DRUGS (30)
  1. CARBOPLATIN [Suspect]
     Active Substance: CARBOPLATIN
     Indication: Non-small cell lung cancer
     Route: 065
     Dates: start: 20210416
  2. ATEZOLIZUMAB [Suspect]
     Active Substance: ATEZOLIZUMAB
     Indication: Non-small cell lung cancer
     Route: 041
     Dates: start: 20210416
  3. FELODIPINE [Concomitant]
     Active Substance: FELODIPINE
     Dosage: DURATION: 1 DAY
     Dates: start: 20210416, end: 20210416
  4. LEVOTHYROXINE [Concomitant]
     Active Substance: LEVOTHYROXINE\LEVOTHYROXINE SODIUM
  5. OMEPRAZOLE [Concomitant]
     Active Substance: OMEPRAZOLE
  6. ONDANSETRON [Concomitant]
     Active Substance: ONDANSETRON
     Dosage: DURATION: 1 DAY
     Dates: start: 20210621, end: 20210621
  7. ONDANSETRON [Concomitant]
     Active Substance: ONDANSETRON
     Dosage: DURATION: 1 DAY
     Dates: start: 20210416, end: 20210416
  8. ONDANSETRON [Concomitant]
     Active Substance: ONDANSETRON
     Dosage: DURATION: 1 DAY
     Dates: start: 20210531, end: 20210531
  9. BEVACIZUMAB [Suspect]
     Active Substance: BEVACIZUMAB
     Indication: Non-small cell lung cancer
     Route: 042
     Dates: start: 20210416
  10. CHLORPHENIRAMINE MALEATE [Concomitant]
     Active Substance: CHLORPHENIRAMINE MALEATE
     Dosage: DURATION: 1 DAY
     Dates: start: 20210416, end: 20210416
  11. DOMPERIDONE [Concomitant]
     Active Substance: DOMPERIDONE
  12. FLUOXETINE [Concomitant]
     Active Substance: FLUOXETINE HYDROCHLORIDE
     Indication: Prophylaxis
     Dates: start: 20211011
  13. LACTULOSE [Concomitant]
     Active Substance: LACTULOSE
  14. LORAZEPAM [Concomitant]
     Active Substance: LORAZEPAM
     Dates: start: 20211011
  15. MAGNESIUM ASPARTATE [Concomitant]
     Active Substance: MAGNESIUM ASPARTATE
  16. METOCLOPRAMIDE [Concomitant]
     Active Substance: METOCLOPRAMIDE
     Dates: start: 20210914
  17. ACETAMINOPHEN [Concomitant]
     Active Substance: ACETAMINOPHEN
     Dates: start: 20220510
  18. PREDNISOLONE [Concomitant]
     Active Substance: PREDNISOLONE
     Dosage: DURATION: 57 DAYS
     Dates: start: 20211210, end: 20220204
  19. PREDNISOLONE [Concomitant]
     Active Substance: PREDNISOLONE
     Dosage: DURATION: 85 DAYS
     Dates: start: 20210512, end: 20210804
  20. SENNA [Concomitant]
     Active Substance: SENNA LEAF\SENNOSIDES\SENNOSIDES A AND B
  21. PACLITAXEL [Suspect]
     Active Substance: PACLITAXEL
     Indication: Non-small cell lung cancer
     Route: 065
     Dates: start: 20210416
  22. AFATINIB [Concomitant]
     Active Substance: AFATINIB
     Indication: Neoplasm malignant
  23. DEXAMETHASONE [Concomitant]
     Active Substance: DEXAMETHASONE
     Dosage: DURATION: 1 DAY
     Dates: start: 20210531, end: 20210531
  24. DEXAMETHASONE [Concomitant]
     Active Substance: DEXAMETHASONE
     Dosage: DURATION: 1 DAY
     Dates: start: 20210621, end: 20210621
  25. DEXAMETHASONE [Concomitant]
     Active Substance: DEXAMETHASONE
     Dosage: DURATION: 1 DAY
     Dates: start: 20210416, end: 20210416
  26. CALCIUM CARBONATE\CHOLECALCIFEROL [Concomitant]
     Active Substance: CALCIUM CARBONATE\CHOLECALCIFEROL
     Indication: Prophylaxis
     Dosage: CHEWABLE
  27. ERLOTINIB [Concomitant]
     Active Substance: ERLOTINIB
     Indication: Neoplasm malignant
  28. FAMOTIDINE [Concomitant]
     Active Substance: FAMOTIDINE
     Dosage: DURATION: 1 DAY
     Dates: start: 20210621, end: 20210621
  29. FAMOTIDINE [Concomitant]
     Active Substance: FAMOTIDINE
     Dosage: DURATION: 1 DAY
     Dates: start: 20210531, end: 20210531
  30. FAMOTIDINE [Concomitant]
     Active Substance: FAMOTIDINE
     Dosage: DURATION: 1 DAY
     Dates: start: 20210416, end: 20210416

REACTIONS (3)
  - Autoimmune hepatitis [Recovered/Resolved]
  - Liver function test abnormal [Recovered/Resolved]
  - Constipation [Not Recovered/Not Resolved]

NARRATIVE: CASE EVENT DATE: 20210506
